FAERS Safety Report 5042928-8 (Version None)
Quarter: 2006Q2

REPORT INFORMATION
  Report Type: 
  Country: None (occurrence: None)
  Receive Date: 20060627
  Receipt Date: 20060616
  Transmission Date: 20061013
  Serious: Yes (Hospitalization)
  Sender: FDA-Public Use
  Company Number: 2006070680

PATIENT
  Age: 49 Year
  Sex: Female

DRUGS (2)
  1. AMLODIPINE [Suspect]
     Dosage: ORAL
     Route: 048
     Dates: start: 20060321, end: 20060425
  2. ALLOPURINOL [Suspect]
     Dosage: 200 MG (1 IN 1 D), ORAL
     Route: 048
     Dates: start: 20060321, end: 20060425

REACTIONS (7)
  - DEHYDRATION [None]
  - DIARRHOEA [None]
  - DRUG RASH WITH EOSINOPHILIA AND SYSTEMIC SYMPTOMS [None]
  - HYPERSENSITIVITY [None]
  - OVERDOSE [None]
  - RENAL FAILURE ACUTE [None]
  - WEIGHT DECREASED [None]
